FAERS Safety Report 8875148 (Version 1)
Quarter: 2012Q4

REPORT INFORMATION
  Report Type: 
  Country: US (occurrence: US)
  Receive Date: 20121029
  Receipt Date: 20121029
  Transmission Date: 20130627
  Serious: No
  Sender: FDA-Public Use
  Company Number: US-PFIZER INC-2012265914

PATIENT
  Age: 68 Year
  Sex: Male
  Weight: 93 kg

DRUGS (5)
  1. ARTHROTEC [Suspect]
     Indication: KNEE ARTHRITIS
     Dosage: 75/200 mg/mcg, 1x/day
     Route: 048
     Dates: start: 2000
  2. ARTHROTEC [Suspect]
     Dosage: 75/200 mg/mcg, 1x/day
     Route: 048
     Dates: start: 201210
  3. SIMVASTATIN [Concomitant]
     Dosage: UNK
  4. FINASTERIDE [Concomitant]
     Dosage: UNK
  5. AMLODIPINE/BENAZEPRIL [Concomitant]
     Dosage: UNK

REACTIONS (2)
  - Spondylitis [Unknown]
  - Diarrhoea [Not Recovered/Not Resolved]
